FAERS Safety Report 18302111 (Version 2)
Quarter: 2021Q1

REPORT INFORMATION
  Report Type: Report from Study
  Country: FR (occurrence: FR)
  Receive Date: 20200923
  Receipt Date: 20210107
  Transmission Date: 20210419
  Serious: Yes (Hospitalization)
  Sender: FDA-Public Use
  Company Number: FR-TEVA-2020-FR-1829232

PATIENT
  Age: 51 Year
  Sex: Male
  Weight: 77 kg

DRUGS (8)
  1. TRISENOX [Suspect]
     Active Substance: ARSENIC TRIOXIDE
     Dosage: 11.5 MILLIGRAM DAILY;
     Route: 042
     Dates: start: 20200901, end: 20200911
  2. IDARUBICIN [Concomitant]
     Active Substance: IDARUBICIN
     Dosage: 23 MG ON DAY 1 AND DAY 3
     Route: 042
     Dates: start: 20200828, end: 20200830
  3. ALL?TRANS?RETINOIC ACID [Concomitant]
     Active Substance: TRETINOIN
     Dosage: 80 MILLIGRAM DAILY;
     Route: 048
     Dates: start: 20200828, end: 20200911
  4. ARA?C [Concomitant]
     Active Substance: CYTARABINE
     Route: 065
  5. 6?MERCAPTOPURINE [Concomitant]
     Active Substance: MERCAPTOPURINE
     Route: 065
  6. METHOTREXATE. [Concomitant]
     Active Substance: METHOTREXATE
  7. MITOXANTRONE [Concomitant]
     Active Substance: MITOXANTRONE HYDROCHLORIDE
  8. DEXAMETHASONE. [Concomitant]
     Active Substance: DEXAMETHASONE
     Indication: DIFFERENTIATION SYNDROME
     Dosage: 10 MILLIGRAM DAILY;
     Route: 042
     Dates: start: 20200830, end: 20200909

REACTIONS (1)
  - Acute kidney injury [Recovered/Resolved]

NARRATIVE: CASE EVENT DATE: 20200911
